FAERS Safety Report 8190568-4 (Version None)
Quarter: 2012Q1

REPORT INFORMATION
  Report Type: 
  Country: None (occurrence: None)
  Receive Date: 20120307
  Receipt Date: 20120224
  Transmission Date: 20120608
  Serious: Yes (Death, Other)
  Sender: FDA-Public Use
  Company Number: JP-ROCHE-1017925

PATIENT
  Sex: Male
  Weight: 48 kg

DRUGS (4)
  1. DECADRON [Concomitant]
     Route: 041
     Dates: start: 20100301, end: 20100301
  2. KYTRIL [Concomitant]
     Indication: NON-SMALL CELL LUNG CANCER
     Route: 041
     Dates: start: 20100301, end: 20100301
  3. AVASTIN [Suspect]
     Indication: LUNG ADENOCARCINOMA RECURRENT
     Route: 041
     Dates: start: 20100301, end: 20100301
  4. ALIMTA [Suspect]
     Indication: LUNG ADENOCARCINOMA RECURRENT
     Route: 041
     Dates: start: 20100301, end: 20100301

REACTIONS (2)
  - DIARRHOEA [None]
  - DISEASE PROGRESSION [None]
